FAERS Safety Report 19257761 (Version 1)
Quarter: 2021Q2

REPORT INFORMATION
  Report Type: Spontaneous
  Country: US (occurrence: US)
  Receive Date: 20210513
  Receipt Date: 20210513
  Transmission Date: 20210717
  Serious: Yes (Life-Threatening, Other)
  Sender: FDA-Public Use
  Company Number: None

PATIENT
  Age: 62 Year
  Sex: Female
  Weight: 58.5 kg

DRUGS (3)
  1. MULTI VITAMINS [Concomitant]
     Active Substance: VITAMINS
  2. TEA [Concomitant]
     Active Substance: TEA LEAF
  3. AMBIEN [Suspect]
     Active Substance: ZOLPIDEM TARTRATE
     Indication: INSOMNIA
     Route: 048
     Dates: start: 20040605

REACTIONS (8)
  - Dysphonia [None]
  - Abnormal behaviour [None]
  - Sexually inappropriate behaviour [None]
  - Homicidal ideation [None]
  - Screaming [None]
  - Personality disorder [None]
  - Aggression [None]
  - Memory impairment [None]
